FAERS Safety Report 5487666-2 (Version None)
Quarter: 2007Q4

REPORT INFORMATION
  Report Type: 
  Country: None (occurrence: None)
  Receive Date: 20071017
  Receipt Date: 20071010
  Transmission Date: 20080405
  Serious: Yes (Other)
  Sender: FDA-Public Use
  Company Number: PHEH2007US13502

PATIENT
  Sex: Male

DRUGS (3)
  1. NORVASC [Suspect]
     Indication: HYPERTENSION
  2. HYDROCHLOROTHIAZIDE [Suspect]
     Indication: HYPERTENSION
  3. LISINOPRIL [Suspect]
     Indication: HYPERTENSION

REACTIONS (4)
  - GASTROOESOPHAGEAL REFLUX DISEASE [None]
  - RENAL DISORDER [None]
  - SUNBURN [None]
  - TINEA PEDIS [None]
